FAERS Safety Report 5830468-5 (Version None)
Quarter: 2008Q3

REPORT INFORMATION
  Report Type: 
  Country: None (occurrence: None)
  Receive Date: 20080801
  Receipt Date: 20070621
  Transmission Date: 20090109
  Serious: No
  Sender: FDA-Public Use
  Company Number: US-BRISTOL-MYERS SQUIBB COMPANY-13787023

PATIENT
  Age: 69 Year
  Sex: Male
  Weight: 6 kg

DRUGS (5)
  1. COUMADIN [Suspect]
     Indication: ATRIAL FIBRILLATION
     Dosage: 5MG ON MON-TUES-THURS-FRI-SUN + 2.5MG ON WED-SAT.
     Route: 048
     Dates: start: 20050401
  2. FLOMAX [Concomitant]
  3. ATENOLOL [Concomitant]
  4. LISINOPRIL [Concomitant]
  5. PLAVIX [Concomitant]

REACTIONS (3)
  - MUSCULOSKELETAL PAIN [None]
  - PARAESTHESIA [None]
  - SKIN TIGHTNESS [None]
